FAERS Safety Report 6194838-0 (Version None)
Quarter: 2009Q2

REPORT INFORMATION
  Report Type: 
  Country: None (occurrence: None)
  Receive Date: 20090519
  Receipt Date: 20070824
  Transmission Date: 20091009
  Serious: Yes (Other)
  Sender: FDA-Public Use
  Company Number: US-ASTRAZENECA-2006UW08097

PATIENT
  Age: 15995 Day
  Sex: Female
  Weight: 100.2 kg

DRUGS (39)
  1. SEROQUEL [Suspect]
     Indication: BIPOLAR DISORDER
     Route: 048
     Dates: start: 20030903, end: 20050201
  2. SEROQUEL [Suspect]
     Indication: BIPOLAR I DISORDER
     Route: 048
     Dates: start: 20030903, end: 20050201
  3. SEROQUEL [Suspect]
     Dosage: 25 MG TO 1600 MG
     Route: 048
     Dates: start: 20030903, end: 20050219
  4. SEROQUEL [Suspect]
     Dosage: 25 MG TO 1600 MG
     Route: 048
     Dates: start: 20030903, end: 20050219
  5. GEODON [Concomitant]
     Indication: DEPRESSION
     Route: 065
     Dates: start: 20050201, end: 20050801
  6. GEODON [Concomitant]
     Dosage: 80 MG DAILY, 40 MG ONE TO THREE TIMES A DAY
     Route: 048
  7. GLUCOPHAGE [Concomitant]
     Route: 048
  8. WELLBUTRIN [Concomitant]
     Indication: DEPRESSION
     Dosage: 150 MG THREE TIMES A DAY, 300 MG EVERY DAY
     Route: 065
  9. ZOCOR [Concomitant]
     Route: 048
  10. LAMICTAL [Concomitant]
     Dosage: 25 MG TWO TIMES A DAY, 200 MG DAILY
     Route: 048
  11. PREVACID [Concomitant]
     Route: 048
  12. KLONOPIN [Concomitant]
     Dosage: 0.5 MG THREE TIMES A DAY, 1 MG DAILY, 5 MG THREE TIMES A DAY
     Route: 048
  13. ASPIRIN [Concomitant]
     Route: 065
  14. HYDROCODONE BITARTRATE [Concomitant]
     Route: 065
  15. PROMETHAZINE [Concomitant]
     Indication: PAIN
     Route: 065
  16. LIPITOR [Concomitant]
     Route: 065
  17. CENTRUM [Concomitant]
     Route: 065
  18. PERCOCET [Concomitant]
     Route: 065
  19. EFFEXOR [Concomitant]
     Dosage: 37.5 MG DAILY, 75 MG DAILY
     Route: 065
  20. PROPRANOLOL HYDROCHLORIDE [Concomitant]
     Route: 065
  21. BENZTROPINE [Concomitant]
     Route: 065
  22. CYMBALTA [Concomitant]
     Dosage: 60 MG DAILY, 30 MG EVERY DAY
     Route: 048
  23. PAXIL [Concomitant]
     Route: 065
  24. VISTARIL [Concomitant]
     Route: 065
  25. TRAMADOL HCL [Concomitant]
     Route: 065
  26. PREDNISONE [Concomitant]
     Route: 065
  27. MAXZIDE [Concomitant]
     Route: 065
  28. AMBIEN [Concomitant]
     Route: 048
  29. FLEXERIL [Concomitant]
     Route: 065
  30. NAPROSYN [Concomitant]
     Route: 065
  31. CELEXA [Concomitant]
     Route: 065
  32. XANAX [Concomitant]
     Route: 065
  33. BACLOFEN [Concomitant]
     Route: 065
  34. HYDROCHLOROTHIAZIDE [Concomitant]
     Route: 048
  35. TOPAMAX [Concomitant]
     Route: 065
  36. NEURONTIN [Concomitant]
     Route: 065
  37. ATIVAN [Concomitant]
     Indication: ANXIETY
     Route: 065
  38. DARVOCET [Concomitant]
     Route: 048
  39. NITROSTAT [Concomitant]
     Route: 065

REACTIONS (25)
  - ABDOMINAL PAIN UPPER [None]
  - BACK PAIN [None]
  - BREAST DISCHARGE [None]
  - BRONCHITIS [None]
  - CERVICOBRACHIAL SYNDROME [None]
  - CHEST PAIN [None]
  - CHOLELITHIASIS [None]
  - COITAL BLEEDING [None]
  - DEPENDENT PERSONALITY DISORDER [None]
  - DEPRESSION [None]
  - DIABETES MELLITUS [None]
  - DYSMENORRHOEA [None]
  - DYSPAREUNIA [None]
  - DYSTHYMIC DISORDER [None]
  - HERPES ZOSTER [None]
  - INSOMNIA [None]
  - NECK PAIN [None]
  - OEDEMA PERIPHERAL [None]
  - OSTEOARTHRITIS [None]
  - POST-TRAUMATIC STRESS DISORDER [None]
  - SINUSITIS [None]
  - STRESS URINARY INCONTINENCE [None]
  - SUICIDAL IDEATION [None]
  - URINARY TRACT INFECTION [None]
  - UTERINE LEIOMYOMA [None]
